FAERS Safety Report 8520642-1 (Version None)
Quarter: 2012Q3

REPORT INFORMATION
  Report Type: 
  Country: None (occurrence: None)
  Receive Date: 20120719
  Receipt Date: 20080827
  Transmission Date: 20120928
  Serious: Yes (Disabling)
  Sender: FDA-Public Use
  Company Number: US-BAYER-200816098NA

PATIENT
  Age: 54 Year
  Sex: Male
  Weight: 71 kg

DRUGS (22)
  1. MAGNEVIST [Suspect]
     Indication: NUCLEAR MAGNETIC RESONANCE IMAGING
     Dosage: 15.9 ML, ONCE
     Route: 042
     Dates: start: 20040805, end: 20040805
  2. OMNISCAN [Suspect]
     Indication: NUCLEAR MAGNETIC RESONANCE IMAGING
     Dosage: 14.5 ML, ONCE
     Dates: start: 20050224, end: 20050224
  3. GADOLINIUM IN UNSPECIFIED DRUG [Suspect]
     Dates: start: 20050823, end: 20050823
  4. MARINOL [Concomitant]
  5. EFFEXOR XR [Concomitant]
  6. CARDURA [Concomitant]
  7. COUMADIN [Concomitant]
  8. OMNISCAN [Suspect]
     Dosage: 15 ML, ONCE
     Route: 042
     Dates: start: 20050805, end: 20050805
  9. EMTRIVA [Concomitant]
  10. RENAGEL [Concomitant]
  11. INVIRASE [Concomitant]
  12. CLONIDINE [Concomitant]
  13. LISINOPRIL [Concomitant]
  14. EPOGEN [Concomitant]
  15. LOVENOX [Concomitant]
  16. MAGNEVIST [Suspect]
     Dosage: 20 ML, ONCE
     Dates: start: 19991209, end: 19991209
  17. KALETRA [Concomitant]
  18. HEPARIN [Concomitant]
  19. MAGNEVIST [Suspect]
     Indication: ANGIOGRAM
     Dosage: UNK, ONCE
     Dates: start: 20050823, end: 20050823
  20. MIRAPEX [Concomitant]
  21. MIDODRINE HYDROCHLORIDE [Concomitant]
  22. FUROSEMIDE [Concomitant]

REACTIONS (19)
  - GENERAL PHYSICAL HEALTH DETERIORATION [None]
  - SCAR [None]
  - INJURY [None]
  - EMOTIONAL DISTRESS [None]
  - ANHEDONIA [None]
  - FIBROSIS [None]
  - JOINT CONTRACTURE [None]
  - DEPRESSION [None]
  - GAIT DISTURBANCE [None]
  - PAIN [None]
  - ACTIVITIES OF DAILY LIVING IMPAIRED [None]
  - JOINT STIFFNESS [None]
  - SKIN HYPERTROPHY [None]
  - SKIN INDURATION [None]
  - NEPHROGENIC SYSTEMIC FIBROSIS [None]
  - HYPOAESTHESIA [None]
  - MUSCLE CONTRACTURE [None]
  - ANXIETY [None]
  - MOTOR DYSFUNCTION [None]
